FAERS Safety Report 9440940 (Version 2)
Quarter: 2013Q3

REPORT INFORMATION
  Report Type: Spontaneous
  Country: US (occurrence: None)
  Receive Date: 20130801
  Receipt Date: 20130823
  Transmission Date: 20140515
  Serious: Yes (Other)
  Sender: FDA-Public Use
  Company Number: USA/USA/13/0033593

PATIENT
  Age: 34 Year
  Sex: Male

DRUGS (2)
  1. EFFEXOR [Suspect]
     Indication: MAJOR DEPRESSION
  2. LAMICTAL (LAMOTRIGINE) [Suspect]
     Indication: BIPOLAR DISORDER
     Dates: start: 2003

REACTIONS (12)
  - Drug withdrawal syndrome [None]
  - Hyperacusis [None]
  - Anhedonia [None]
  - Emotional disorder [None]
  - Unevaluable event [None]
  - Anxiety [None]
  - Tinnitus [None]
  - Seasonal affective disorder [None]
  - Inappropriate schedule of drug administration [None]
  - Paraesthesia [None]
  - Headache [None]
  - Nausea [None]
